FAERS Safety Report 5028127-4 (Version None)
Quarter: 2006Q2

REPORT INFORMATION
  Report Type: 
  Country: None (occurrence: None)
  Receive Date: 20060609
  Receipt Date: 20060526
  Transmission Date: 20061013
  Serious: Yes (Hospitalization)
  Sender: FDA-Public Use
  Company Number: US-CVT-061136

PATIENT
  Age: 87 Year
  Sex: Male

DRUGS (1)
  1. RANEXA [Suspect]
     Indication: ANGINA PECTORIS

REACTIONS (4)
  - CARDIAC ENZYMES INCREASED [None]
  - DIZZINESS [None]
  - DYSPNOEA [None]
  - VENTRICULAR DYSFUNCTION [None]
